FAERS Safety Report 7016521-1 (Version None)
Quarter: 2010Q3

REPORT INFORMATION
  Report Type: 
  Country: None (occurrence: None)
  Receive Date: 20100927
  Receipt Date: 20100922
  Transmission Date: 20110219
  Serious: Yes (Hospitalization)
  Sender: FDA-Public Use
  Company Number: A0836574A

PATIENT
  Age: 60 Year
  Sex: Female
  Weight: 84.1 kg

DRUGS (6)
  1. AVANDIA [Suspect]
     Indication: DIABETES MELLITUS
     Dosage: 4MG PER DAY
     Route: 048
  2. PROTONIX [Concomitant]
  3. CYMBALTA [Concomitant]
  4. GLUCOTROL [Concomitant]
  5. ASPIRIN [Concomitant]
  6. PAXIL [Concomitant]

REACTIONS (3)
  - CEREBROVASCULAR ACCIDENT [None]
  - CONDITION AGGRAVATED [None]
  - TRANSIENT ISCHAEMIC ATTACK [None]
